FAERS Safety Report 17429025 (Version 1)
Quarter: 2020Q1

REPORT INFORMATION
  Report Type: Spontaneous
  Country: US (occurrence: US)
  Receive Date: 20200217
  Receipt Date: 20200217
  Transmission Date: 20200409
  Serious: No
  Sender: FDA-Public Use
  Company Number: US-TAKEDA-2020TUS009094

PATIENT
  Sex: Male
  Weight: 99.77 kg

DRUGS (1)
  1. NINLARO [Suspect]
     Active Substance: IXAZOMIB CITRATE
     Indication: PLASMA CELL MYELOMA
     Dosage: UNK
     Route: 048
     Dates: start: 201901

REACTIONS (5)
  - Cough [Unknown]
  - Dyspnoea [Unknown]
  - Respiratory distress [Unknown]
  - Pyrexia [Unknown]
  - Respiratory tract congestion [Unknown]
